FAERS Safety Report 22946160 (Version 5)
Quarter: 2023Q4

REPORT INFORMATION
  Report Type: Report from Study
  Country: BE (occurrence: BE)
  Receive Date: 20230915
  Receipt Date: 20231207
  Transmission Date: 20240110
  Serious: Yes (Hospitalization, Other)
  Sender: FDA-Public Use
  Company Number: BE-ABBVIE-5401647

PATIENT
  Age: 78 Year
  Sex: Female

DRUGS (20)
  1. CARBIDOPA\LEVODOPA [Suspect]
     Active Substance: CARBIDOPA\LEVODOPA
     Indication: Parkinson^s disease
     Dosage: MD; 3.5 ML, CD: 2.3 ML/HR; REMAINS AT 16 HOURS
     Route: 050
     Dates: start: 20230424, end: 20230426
  2. CARBIDOPA\LEVODOPA [Suspect]
     Active Substance: CARBIDOPA\LEVODOPA
     Dosage: MD; 6.0 ML, CD: 2.2 ML/HR, ED: 1,5 ML, CND: 1.4 ML/HR; REMAINS AT 24 HOURS
     Route: 050
     Dates: start: 20200527
  3. CARBIDOPA\LEVODOPA [Suspect]
     Active Substance: CARBIDOPA\LEVODOPA
     Dosage: CD: 2.1 ML/HR; REMAINS AT 16 HOURS
     Route: 050
     Dates: start: 20230426, end: 20230504
  4. CARBIDOPA\LEVODOPA [Suspect]
     Active Substance: CARBIDOPA\LEVODOPA
     Dosage: MD; 6.0 ML, CD: 2.2 ML/HR, ED: 1,5 ML, CND: 1.4 ML/HR; REMAINS AT 24 HOURS?LAST ADMIN DATE: 2023
     Route: 050
     Dates: start: 20230615
  5. CARBIDOPA\LEVODOPA [Suspect]
     Active Substance: CARBIDOPA\LEVODOPA
     Dosage: MD; 6.0 ML, CD: 2.2 ML/HR, ED: 1,5 ML, CND: 1.4 ML/HR; REMAINS AT 24 HOURS
     Route: 050
     Dates: start: 2023, end: 2023
  6. CARBIDOPA\LEVODOPA [Suspect]
     Active Substance: CARBIDOPA\LEVODOPA
     Dosage: MD; 6.5 ML, CD: 2.4 ML/HR, ED: 1,5 ML, CND: 1.3 ML/HR; GOES TO 24 HOURS
     Route: 050
     Dates: start: 20230504, end: 20230615
  7. CARBIDOPA\LEVODOPA [Suspect]
     Active Substance: CARBIDOPA\LEVODOPA
     Route: 050
  8. APOMORPHINE HYDROCHLORIDE [Concomitant]
     Active Substance: APOMORPHINE HYDROCHLORIDE
     Indication: Product used for unknown indication
     Dosage: 1 MG MAX 10 MG PER 24 HOURS (INTERVAL:20 MIN)
  9. BENSERAZIDE\LEVODOPA [Concomitant]
     Active Substance: BENSERAZIDE\LEVODOPA
     Indication: Product used for unknown indication
     Dosage: 0.5 TABLET, MAX 2 TABLET (INTERVAL:6 HOURS)?FORM STRENGTH: 250 UNKNOWN
  10. BENSERAZIDE\LEVODOPA [Concomitant]
     Active Substance: BENSERAZIDE\LEVODOPA
     Indication: Product used for unknown indication
     Dosage: FORM STRENGTH: 250 UNKNOWN
  11. BENSERAZIDE\LEVODOPA [Concomitant]
     Active Substance: BENSERAZIDE\LEVODOPA
     Indication: Product used for unknown indication
     Dosage: FORM STRENGTH: 125 UNKNOWN
  12. BENSERAZIDE\LEVODOPA [Concomitant]
     Active Substance: BENSERAZIDE\LEVODOPA
     Indication: Product used for unknown indication
     Dosage: TIME INTERVAL: 0.16666667 DAYS: FORM STRENGTH: 250 MG
  13. AMANTADINE [Concomitant]
     Active Substance: AMANTADINE
     Indication: Product used for unknown indication
     Dosage: FORM STRENGTH: 100 UNKNOWN
  14. EFFEXOR [Concomitant]
     Active Substance: VENLAFAXINE HYDROCHLORIDE
     Indication: Product used for unknown indication
  15. EFFEXOR [Concomitant]
     Active Substance: VENLAFAXINE HYDROCHLORIDE
     Indication: Product used for unknown indication
  16. Pantomed [Concomitant]
     Indication: Product used for unknown indication
     Dosage: FORM STRENGTH: 40 UNKNOWN
  17. MICARDIS [Concomitant]
     Active Substance: TELMISARTAN
     Indication: Product used for unknown indication
  18. ASPIRIN [Concomitant]
     Active Substance: ASPIRIN
     Indication: Product used for unknown indication
     Dosage: FORM STRENGTH: 80 UNKNOWN
  19. CLOZAPINE [Concomitant]
     Active Substance: CLOZAPINE
     Indication: Product used for unknown indication
  20. LORMETAZEPAM FAR [Concomitant]
     Indication: Product used for unknown indication

REACTIONS (19)
  - Hormone level abnormal [Unknown]
  - Dysarthria [Not Recovered/Not Resolved]
  - Wheelchair user [Unknown]
  - Device placement issue [Recovered/Resolved]
  - Off label use [Recovered/Resolved]
  - Mobility decreased [Unknown]
  - Device issue [Unknown]
  - Device dislocation [Recovered/Resolved]
  - Somnolence [Unknown]
  - Confusional state [Unknown]
  - Rehabilitation therapy [Unknown]
  - Daydreaming [Unknown]
  - Hypophagia [Unknown]
  - Dysphagia [Not Recovered/Not Resolved]
  - Dysstasia [Unknown]
  - Loss of personal independence in daily activities [Unknown]
  - General physical health deterioration [Unknown]
  - Device occlusion [Recovered/Resolved]
  - Incorrect route of product administration [Recovered/Resolved]

NARRATIVE: CASE EVENT DATE: 20230101
